FAERS Safety Report 6012612-2 (Version None)
Quarter: 2008Q4

REPORT INFORMATION
  Report Type: 
  Country: None (occurrence: None)
  Receive Date: 20081217
  Receipt Date: 20081205
  Transmission Date: 20090506
  Serious: Yes (Other)
  Sender: FDA-Public Use
  Company Number: 2008SP024874

PATIENT
  Age: 65 Year
  Sex: Female

DRUGS (2)
  1. PEG-INTRON [Suspect]
     Indication: HEPATITIS C
     Dosage: 100 MCG; QW;
  2. RIBAVIRIN [Suspect]
     Indication: HEPATITIS C

REACTIONS (9)
  - ALOPECIA [None]
  - CHORIORETINAL DISORDER [None]
  - GRANULOMA [None]
  - MYODESOPSIA [None]
  - OCULAR SARCOIDOSIS [None]
  - PHLEBITIS [None]
  - PYREXIA [None]
  - UVEITIS [None]
  - VISUAL IMPAIRMENT [None]
